FAERS Safety Report 17102645 (Version 1)
Quarter: 2019Q4

REPORT INFORMATION
  Report Type: Report from Study
  Country: US (occurrence: US)
  Receive Date: 20191202
  Receipt Date: 20191202
  Transmission Date: 20200122
  Serious: No
  Sender: FDA-Public Use
  Company Number: NVSC2019US003492

PATIENT
  Sex: Female

DRUGS (1)
  1. TASIGNA [Suspect]
     Active Substance: NILOTINIB
     Indication: PRODUCT USED FOR UNKNOWN INDICATION
     Route: 065

REACTIONS (8)
  - Pruritus [Unknown]
  - Palpitations [Unknown]
  - Insomnia [Unknown]
  - Skin discolouration [Unknown]
  - Heart rate increased [Unknown]
  - Headache [Unknown]
  - Feeling cold [Unknown]
  - Burning sensation [Unknown]
